FAERS Safety Report 14084161 (Version 1)
Quarter: 2017Q4

REPORT INFORMATION
  Report Type: Spontaneous
  Country: US (occurrence: US)
  Receive Date: 20171013
  Receipt Date: 20171013
  Transmission Date: 20180321
  Serious: Yes (Other)
  Sender: FDA-Public Use
  Company Number: None

PATIENT
  Age: 49 Year
  Sex: Female
  Weight: 135.9 kg

DRUGS (22)
  1. CIPROFLOXACIN. [Suspect]
     Active Substance: CIPROFLOXACIN
     Indication: URINARY TRACT INFECTION
     Route: 042
     Dates: start: 20171012, end: 20171013
  2. FLONASE [Concomitant]
     Active Substance: FLUTICASONE PROPIONATE
  3. TEGRETOL [Concomitant]
     Active Substance: CARBAMAZEPINE
  4. GABAPENTIN. [Concomitant]
     Active Substance: GABAPENTIN
  5. KETOTIFEN FUMARATE. [Concomitant]
     Active Substance: KETOTIFEN FUMARATE
  6. DEPAKOTE [Concomitant]
     Active Substance: DIVALPROEX SODIUM
  7. ASPIRIN. [Concomitant]
     Active Substance: ASPIRIN
  8. MECLIZINE [Concomitant]
     Active Substance: MECLIZINE HYDROCHLORIDE
  9. MELATONIN [Concomitant]
     Active Substance: MELATONIN
  10. ASMANEX [Concomitant]
     Active Substance: MOMETASONE FUROATE
  11. LAMICTAL [Concomitant]
     Active Substance: LAMOTRIGINE
  12. WELLBUTRIN [Concomitant]
     Active Substance: BUPROPION HYDROCHLORIDE
  13. BACLOFEN. [Concomitant]
     Active Substance: BACLOFEN
  14. POTASSIUM GLUCINATE [Concomitant]
  15. PERCOCET [Concomitant]
     Active Substance: ACETAMINOPHEN\OXYCODONE HYDROCHLORIDE
  16. ATENOLOL. [Concomitant]
     Active Substance: ATENOLOL
  17. MAGNESIUM [Concomitant]
     Active Substance: MAGNESIUM
  18. KLONOPIN [Concomitant]
     Active Substance: CLONAZEPAM
  19. MOBIC [Concomitant]
     Active Substance: MELOXICAM
  20. AMBIEN [Concomitant]
     Active Substance: ZOLPIDEM TARTRATE
  21. VITAMIN B12 [Concomitant]
     Active Substance: CYANOCOBALAMIN
  22. ZINC. [Concomitant]
     Active Substance: ZINC

REACTIONS (2)
  - Infusion site erythema [None]
  - Infusion site pruritus [None]

NARRATIVE: CASE EVENT DATE: 20171013
